FAERS Safety Report 8367246 (Version 2)
Quarter: 2013Q1

REPORT INFORMATION
  Report Type: Spontaneous
  Country: US (occurrence: US)
  Receive Date: 20120128
  Receipt Date: 20130131
  Transmission Date: 20140127
  Serious: No
  Sender: FDA-Public Use
  Company Number: US-ABBOTT-11P-163-0724075-00

PATIENT
  Age: 62 Year
  Sex: 0
  Weight: 66.74 kg

DRUGS (4)
  1. HUMIRA [Suspect]
     Indication: RHEUMATOID ARTHRITIS
     Dates: end: 20120221
  2. PRAVASTATIN [Concomitant]
     Indication: PRODUCT USED FOR UNKNOWN INDICATION
     Dosage: 10 MG AT HS DAILY
  3. PREDNISONE [Concomitant]
     Dosage: 1 TABLET ONCE DAILY
     Route: 048
  4. BACLOFEN [Concomitant]
     Indication: PRODUCT USED FOR UNKNOWN INDICATION
     Dosage: 1 TABLET 3 TIMES DAILY

REACTIONS (2)
  - Tardive dyskinesia [Not Recovered/Not Resolved]
  - Arthropathy [Unknown]
